FAERS Safety Report 7978644-X (Version None)
Quarter: 2011Q4

REPORT INFORMATION
  Report Type: 
  Country: None (occurrence: None)
  Receive Date: 20111207
  Receipt Date: 20111121
  Transmission Date: 20120403
  Serious: Yes (Other)
  Sender: FDA-Public Use
  Company Number: DSA_47376_2011

PATIENT
  Age: 77 Year
  Sex: Female

DRUGS (14)
  1. HALCION [Suspect]
     Indication: PRODUCT USED FOR UNKNOWN INDICATION
     Dosage: (0.25 MG QD ORAL)
     Route: 048
     Dates: start: 20110131, end: 20110714
  2. BIOFERMIN /00275501/ [Concomitant]
  3. LOSARTAN POTASSIUM AND HYDROCHLOROTHIAZIDE [Suspect]
     Indication: PRODUCT USED FOR UNKNOWN INDICATION
     Dosage: (1 DF QD ORAL)
     Route: 048
     Dates: start: 20110713
  4. METHYCOBAL [Concomitant]
  5. LANSOPRAZOLE [Concomitant]
  6. NORVASC [Suspect]
     Indication: PRODUCT USED FOR UNKNOWN INDICATION
     Dosage: ( 5 MGQD ORAL)
     Route: 048
     Dates: start: 20101020
  7. ADENOSINE [Concomitant]
  8. MUCOSTA [Concomitant]
  9. SANCOBA [Concomitant]
  10. ENALAPRIL MALEATE [Suspect]
     Indication: PRODUCT USED FOR UNKNOWN INDICATION
     Dosage: (5 MG QD ORAL)
     Route: 048
     Dates: start: 20091207, end: 20110606
  11. DEPAS [Concomitant]
  12. PREDNISOLONE [Concomitant]
  13. LENDORM [Suspect]
     Indication: PRODUCT USED FOR UNKNOWN INDICATION
     Dosage: (0.5 MG QD ORAL)
     Route: 048
     Dates: start: 20100104
  14. BERIZYM /00517401/ [Concomitant]

REACTIONS (2)
  - SUDDEN HEARING LOSS [None]
  - DYSGEUSIA [None]
